FAERS Safety Report 6877697-X (Version None)
Quarter: 2010Q3

REPORT INFORMATION
  Report Type: 
  Country: None (occurrence: None)
  Receive Date: 20100727
  Receipt Date: 20100712
  Transmission Date: 20110219
  Serious: No
  Sender: FDA-Public Use
  Company Number: US-ABBOTT-10P-163-0648506-00

PATIENT
  Sex: Female

DRUGS (3)
  1. SYNTHROID [Suspect]
     Indication: HYPOTHYROIDISM
     Route: 048
     Dates: start: 20091101, end: 20100201
  2. SYNTHROID [Suspect]
     Route: 048
     Dates: start: 20100201, end: 20100401
  3. SYNTHROID [Suspect]
     Dosage: 1.5 IN 1 D
     Route: 048
     Dates: start: 20100401

REACTIONS (3)
  - BLOOD THYROID STIMULATING HORMONE ABNORMAL [None]
  - DYSGEUSIA [None]
  - PARAESTHESIA ORAL [None]
